FAERS Safety Report 9837286 (Version 1)
Quarter: 2014Q1

REPORT INFORMATION
  Report Type: Spontaneous
  Country: US (occurrence: None)
  Receive Date: 20140117
  Receipt Date: 20140117
  Transmission Date: 20141002
  Serious: Yes (Disabling)
  Sender: FDA-Public Use
  Company Number: None

PATIENT
  Age: 35 Year
  Sex: Female
  Weight: 70.31 kg

DRUGS (1)
  1. DEPO PROVERA [Suspect]
     Indication: VAGINAL HAEMORRHAGE
     Dosage: 2 SHOTS  INTO THE MUSCLE
     Route: 030
     Dates: start: 20120910

REACTIONS (1)
  - Diabetes mellitus [None]
